FAERS Safety Report 4639162-X (Version None)
Quarter: 2005Q2

REPORT INFORMATION
  Report Type: 
  Country: None (occurrence: None)
  Receive Date: 20050418
  Receipt Date: 20050407
  Transmission Date: 20051028
  Serious: Yes (Hospitalization)
  Sender: FDA-Public Use
  Company Number: 200510178BCA

PATIENT
  Age: 73 Year
  Sex: Male

DRUGS (10)
  1. CIPROFLOXACIN [Suspect]
     Indication: ESCHERICHIA INFECTION
     Dosage: 2000 MG, TOTAL DAILY, ORAL
     Route: 048
     Dates: start: 20050401
  2. CIPROFLOXACIN [Suspect]
     Indication: PROSTATITIS
     Dosage: 2000 MG, TOTAL DAILY, ORAL
     Route: 048
     Dates: start: 20050401
  3. XATRAL [Concomitant]
  4. ALTACE [Concomitant]
  5. TIAZAC [Concomitant]
  6. LIPIDAL [Concomitant]
  7. DIABETA [Concomitant]
  8. PLAVIX [Concomitant]
  9. LECTOPAM TAB [Concomitant]
  10. PANTOPRAZOLE SODIUM [Concomitant]

REACTIONS (2)
  - GASTRITIS EROSIVE [None]
  - PANCREATITIS [None]
